FAERS Safety Report 8840160 (Version 4)
Quarter: 2013Q3

REPORT INFORMATION
  Report Type: Report from Study
  Country: BR (occurrence: BR)
  Receive Date: 20121015
  Receipt Date: 20130814
  Transmission Date: 20140515
  Serious: Yes (Hospitalization)
  Sender: FDA-Public Use
  Company Number: BR-ROCHE-1144635

PATIENT
  Sex: Female
  Weight: 58 kg

DRUGS (5)
  1. MABTHERA [Suspect]
     Indication: RHEUMATOID ARTHRITIS
     Route: 042
     Dates: start: 20100401
  2. NISULID [Concomitant]
     Route: 065
  3. METHOTREXATE [Concomitant]
     Indication: ARTHRITIS
     Route: 065
  4. REMICADE [Concomitant]
     Indication: ARTHRITIS
     Route: 065
  5. DEFLAZACORT [Concomitant]

REACTIONS (6)
  - Breast disorder [Unknown]
  - Emotional disorder [Unknown]
  - Rheumatoid arthritis [Unknown]
  - Productive cough [Not Recovered/Not Resolved]
  - Nephrolithiasis [Not Recovered/Not Resolved]
  - Haemorrhage urinary tract [Not Recovered/Not Resolved]
